FAERS Safety Report 6263600-2 (Version None)
Quarter: 2009Q3

REPORT INFORMATION
  Report Type: 
  Country: None (occurrence: None)
  Receive Date: 20090710
  Receipt Date: 20090521
  Transmission Date: 20100115
  Serious: No
  Sender: FDA-Public Use
  Company Number: A0786719A

PATIENT
  Age: 50 Year
  Sex: Female

DRUGS (4)
  1. TYKERB [Suspect]
     Indication: BREAST CANCER
     Dosage: 1250MG PER DAY
     Route: 048
  2. XELODA [Concomitant]
     Dosage: 2000MGM2 PER DAY
  3. ZOMETA [Concomitant]
  4. DIABETES MEDICATION [Concomitant]

REACTIONS (1)
  - EJECTION FRACTION DECREASED [None]
